FAERS Safety Report 23161319 (Version 1)
Quarter: 2023Q4

REPORT INFORMATION
  Report Type: Spontaneous
  Country: GB (occurrence: GB)
  Receive Date: 20231108
  Receipt Date: 20231108
  Transmission Date: 20240110
  Serious: Yes (Other)
  Sender: FDA-Public Use
  Company Number: None

PATIENT
  Age: 85 Year
  Sex: Male
  Weight: 66 kg

DRUGS (1)
  1. RITUXIMAB [Suspect]
     Active Substance: RITUXIMAB
     Indication: Haematological malignancy
     Dosage: UNK

REACTIONS (6)
  - Seizure [Recovered/Resolved]
  - Unresponsive to stimuli [Unknown]
  - Pulse abnormal [Unknown]
  - Tachycardia [Unknown]
  - Hypotension [Unknown]
  - Blood lactic acid increased [Unknown]

NARRATIVE: CASE EVENT DATE: 20231020
